FAERS Safety Report 8533922 (Version 4)
Quarter: 2012Q4

REPORT INFORMATION
  Report Type: Report from Study
  Country: US (occurrence: US)
  Receive Date: 20120427
  Receipt Date: 20121227
  Transmission Date: 20130627
  Serious: Yes (Hospitalization)
  Sender: FDA-Public Use
  Company Number: US-ROCHE-1060566

PATIENT
  Age: 54 Year
  Sex: Male

DRUGS (13)
  1. BEVACIZUMAB [Suspect]
     Indication: MALIGNANT GLIOMA
     Dosage: last dose received on 29/May/2012
     Route: 065
  2. BEVACIZUMAB [Suspect]
     Route: 065
     Dates: start: 20120329
  3. BEVACIZUMAB [Suspect]
     Route: 065
     Dates: start: 20120809
  4. ACETAMINOPHEN [Concomitant]
     Route: 065
     Dates: start: 20111006
  5. CLINDAMYCIN [Concomitant]
     Route: 065
     Dates: start: 20111216, end: 20120529
  6. KETOCONAZOLE [Concomitant]
     Route: 065
     Dates: start: 20111216, end: 20120529
  7. LEVETIRACETAM [Concomitant]
     Route: 065
     Dates: start: 20120513, end: 20120701
  8. MOMETASONE FUROATE [Concomitant]
     Route: 065
     Dates: start: 20120329
  9. BIMATOPROST [Concomitant]
     Route: 065
     Dates: start: 20111110
  10. DEXAMETHASONE [Concomitant]
     Route: 065
     Dates: start: 20120606, end: 20120701
  11. DOCUSATE WITH CASANTHRANOL [Concomitant]
     Route: 065
     Dates: start: 20120413, end: 20120417
  12. SENNA [Concomitant]
     Route: 065
     Dates: start: 20120413, end: 20120417
  13. SULFAMETHOXAZOLE/TRIMETHOPRIM [Concomitant]
     Route: 065
     Dates: start: 20120413, end: 20120529

REACTIONS (9)
  - Convulsion [Recovered/Resolved]
  - Lethargy [Recovered/Resolved]
  - Meningitis [Recovered/Resolved]
  - Headache [Recovered/Resolved]
  - Central nervous system necrosis [Recovered/Resolved]
  - Pyrexia [Recovered/Resolved]
  - Aphasia [Recovered/Resolved]
  - Aphasia [Unknown]
  - Vomiting [Recovered/Resolved]
